FAERS Safety Report 6554843-9 (Version None)
Quarter: 2010Q1

REPORT INFORMATION
  Report Type: 
  Country: None (occurrence: None)
  Receive Date: 20100127
  Receipt Date: 20100121
  Transmission Date: 20100710
  Serious: Yes (Death)
  Sender: FDA-Public Use
  Company Number: US-GILEAD-2010-0026381

PATIENT
  Sex: Female
  Weight: 61.744 kg

DRUGS (12)
  1. LETAIRIS [Suspect]
     Indication: PULMONARY ARTERIAL HYPERTENSION
     Route: 048
     Dates: start: 20090701
  2. LASIX [Concomitant]
  3. LISINOPRIL [Concomitant]
  4. SPIRONOLACTONE [Concomitant]
  5. LOPRESSOR [Concomitant]
  6. ZOCOR [Concomitant]
  7. LOMOTIL [Concomitant]
  8. TYLENOL [Concomitant]
  9. SANDOSTATIN [Concomitant]
  10. KLOR-CON [Concomitant]
  11. PLAVIX [Concomitant]
  12. TRAMADOL [Concomitant]

REACTIONS (3)
  - CARCINOID TUMOUR [None]
  - METASTASIS [None]
  - PULMONARY HYPERTENSION [None]
